FAERS Safety Report 9680329 (Version 1)
Quarter: 2013Q4

REPORT INFORMATION
  Report Type: Report from Study
  Country: DE (occurrence: DE)
  Receive Date: 20131111
  Receipt Date: 20131111
  Transmission Date: 20140711
  Serious: Yes (Hospitalization)
  Sender: FDA-Public Use
  Company Number: DE-ROCHE-1301470

PATIENT
  Age: 38 Year
  Sex: Male
  Weight: 70.1 kg

DRUGS (4)
  1. RANIBIZUMAB [Suspect]
     Indication: DIABETIC RETINAL OEDEMA
     Route: 050
     Dates: start: 20130423
  2. RANIBIZUMAB [Suspect]
     Route: 050
     Dates: start: 20130909
  3. RANIBIZUMAB [Suspect]
     Route: 050
     Dates: start: 20131104
  4. INSULIN [Concomitant]
     Route: 065
     Dates: start: 1996

REACTIONS (8)
  - Splenomegaly [Recovered/Resolved]
  - Diarrhoea [Recovered/Resolved]
  - Neck pain [Recovered/Resolved]
  - Abdominal pain [Recovered/Resolved]
  - Dizziness [Recovered/Resolved]
  - Headache [Recovered/Resolved]
  - Restlessness [Unknown]
  - Tremor [Unknown]
